FAERS Safety Report 13862620 (Version 1)
Quarter: 2017Q3

REPORT INFORMATION
  Report Type: Spontaneous
  Country: US (occurrence: US)
  Receive Date: 20170814
  Receipt Date: 20170814
  Transmission Date: 20171127
  Serious: Yes (Other)
  Sender: FDA-Public Use
  Company Number: US-CIPLA LTD.-2017US13665

PATIENT

DRUGS (8)
  1. LISINOPRIL. [Concomitant]
     Active Substance: LISINOPRIL
     Indication: HYPERTENSION
     Dosage: 20 MG, BID
     Route: 048
  2. GABAPENTIN. [Suspect]
     Active Substance: GABAPENTIN
     Dosage: 400 MG, 1-2 CAPSULES AT NIGHT, ONCE IN A BLUE MOON
     Route: 065
  3. GABAPENTIN. [Suspect]
     Active Substance: GABAPENTIN
     Indication: NEURALGIA
     Dosage: 400 MG, UNK
     Route: 065
     Dates: start: 2016, end: 2017
  4. LEVOTHYROXINE. [Concomitant]
     Active Substance: LEVOTHYROXINE
     Indication: HYPOTHYROIDISM
     Dosage: 75 MCG, QD
     Route: 048
  5. HYDROCHLOROTHIAZIDE. [Concomitant]
     Active Substance: HYDROCHLOROTHIAZIDE
     Indication: HYPERTENSION
     Dosage: 12.5 MG, BID
     Route: 048
  6. LYRICA [Suspect]
     Active Substance: PREGABALIN
     Indication: NEURALGIA
     Dosage: 50 MG, TWO CAPSULES IN THE MORNING AND TWO IN THE NIGHT
     Route: 065
     Dates: start: 201705
  7. LYRICA [Suspect]
     Active Substance: PREGABALIN
     Dosage: 50 MG, 2 IN THE MORNING, 1 IN AFTERNOON AND 2 AT NIGHT
     Route: 065
     Dates: start: 201707
  8. GABAPENTIN. [Suspect]
     Active Substance: GABAPENTIN
     Dosage: 400 MG, 08-12 CAPSULES A DAY
     Route: 065
     Dates: start: 2016, end: 2017

REACTIONS (6)
  - Feeling abnormal [Unknown]
  - Diabetes mellitus [Unknown]
  - Weight increased [Unknown]
  - Intentional product misuse [Unknown]
  - Condition aggravated [Unknown]
  - Drug ineffective [Unknown]

NARRATIVE: CASE EVENT DATE: 20170704
